FAERS Safety Report 5874680-8 (Version None)
Quarter: 2008Q3

REPORT INFORMATION
  Report Type: 
  Country: None (occurrence: None)
  Receive Date: 20080909
  Receipt Date: 20080826
  Transmission Date: 20090109
  Serious: Yes (Other)
  Sender: FDA-Public Use
  Company Number: BR-JNJFOC-20080900739

PATIENT
  Age: 62 Year
  Sex: Male

DRUGS (4)
  1. HALDOL [Suspect]
     Indication: AGGRESSION
     Route: 065
  2. HALDOL [Suspect]
     Indication: ANXIETY
     Route: 065
  3. AMITRIPTYLINE HCL [Suspect]
     Indication: AGGRESSION
     Route: 065
  4. AMITRIPTYLINE HCL [Suspect]
     Indication: ANXIETY
     Route: 065

REACTIONS (6)
  - GLASGOW COMA SCALE [None]
  - INCORRECT DOSE ADMINISTERED [None]
  - LETHARGY [None]
  - LOSS OF CONSCIOUSNESS [None]
  - SNORING [None]
  - SOMNOLENCE [None]
